FAERS Safety Report 8815890 (Version 1)
Quarter: 2012Q4

REPORT INFORMATION
  Report Type: Report from Study
  Country: CA (occurrence: CA)
  Receive Date: 20120928
  Receipt Date: 20120928
  Transmission Date: 20130627
  Serious: Yes (Other)
  Sender: FDA-Public Use
  Company Number: CA-ROCHE-1138828

PATIENT
  Sex: Male

DRUGS (6)
  1. HERCEPTIN [Suspect]
     Indication: METASTATIC GASTRIC CANCER
     Route: 042
     Dates: start: 20111031
  2. XELODA [Suspect]
     Indication: GASTRIC CANCER
     Route: 048
     Dates: start: 201111, end: 201202
  3. XELODA [Suspect]
     Dosage: restarted
     Route: 065
     Dates: start: 201206
  4. DIOVAN [Concomitant]
  5. IRON [Concomitant]
  6. MULTIVITAMIN [Concomitant]

REACTIONS (3)
  - Tumour marker increased [Unknown]
  - Burning sensation [Recovering/Resolving]
  - Burning sensation [Recovering/Resolving]
